APPROVED DRUG PRODUCT: CALCIUM CHLORIDE 10%
Active Ingredient: CALCIUM CHLORIDE
Strength: 100MG/ML
Dosage Form/Route: INJECTABLE;INJECTION
Application: A217463 | Product #001 | TE Code: AP
Applicant: SQUARE PHARMACEUTICALS PLC
Approved: Sep 29, 2025 | RLD: No | RS: No | Type: RX